FAERS Safety Report 11908004 (Version 1)
Quarter: 2016Q1

REPORT INFORMATION
  Report Type: Spontaneous
  Country: FR (occurrence: FR)
  Receive Date: 20160111
  Receipt Date: 20160111
  Transmission Date: 20160526
  Serious: Yes (Hospitalization)
  Sender: FDA-Public Use
  Company Number: PHHY2016FR001625

PATIENT
  Age: 68 Year
  Sex: Male

DRUGS (10)
  1. NEORAL [Suspect]
     Active Substance: CYCLOSPORINE
     Dosage: 80 MG, BID
     Route: 048
     Dates: start: 20140123
  2. ALPRAZOLAM. [Suspect]
     Active Substance: ALPRAZOLAM
     Indication: PRODUCT USED FOR UNKNOWN INDICATION
     Route: 065
  3. ORACILLINE [Suspect]
     Active Substance: PENICILLIN V
     Indication: PRODUCT USED FOR UNKNOWN INDICATION
     Dosage: UNK
     Route: 048
     Dates: start: 20131214, end: 20140121
  4. NOXAFIL [Suspect]
     Active Substance: POSACONAZOLE
     Indication: PRODUCT USED FOR UNKNOWN INDICATION
     Dosage: 200 MG, UNK
     Route: 048
     Dates: start: 20140107
  5. SEROPLEX [Suspect]
     Active Substance: ESCITALOPRAM OXALATE
     Indication: PRODUCT USED FOR UNKNOWN INDICATION
     Dosage: UNK
     Route: 048
     Dates: start: 20131214, end: 20140121
  6. MECIR [Suspect]
     Active Substance: TAMSULOSIN HYDROCHLORIDE
     Indication: PRODUCT USED FOR UNKNOWN INDICATION
     Dosage: UNK
     Route: 048
     Dates: start: 20131214, end: 20140121
  7. NEORAL [Suspect]
     Active Substance: CYCLOSPORINE
     Indication: STEM CELL TRANSPLANT
     Dosage: 20 MG, QD
     Route: 048
     Dates: start: 20130923, end: 20140121
  8. SPECIAFOLDINE [Suspect]
     Active Substance: FOLIC ACID
     Indication: PRODUCT USED FOR UNKNOWN INDICATION
     Dosage: UNK
     Route: 048
  9. ZELITREX [Suspect]
     Active Substance: VALACYCLOVIR HYDROCHLORIDE
     Indication: PRODUCT USED FOR UNKNOWN INDICATION
     Dosage: UNK
     Route: 048
     Dates: start: 20131214, end: 20140121
  10. BACTRIM [Suspect]
     Active Substance: SULFAMETHOXAZOLE\TRIMETHOPRIM
     Indication: PRODUCT USED FOR UNKNOWN INDICATION
     Dosage: LONG TERM
     Route: 048
     Dates: start: 20131214

REACTIONS (1)
  - Guillain-Barre syndrome [Recovering/Resolving]

NARRATIVE: CASE EVENT DATE: 20140119
